FAERS Safety Report 26132425 (Version 1)
Quarter: 2025Q4

REPORT INFORMATION
  Report Type: Spontaneous
  Country: JP (occurrence: JP)
  Receive Date: 20251208
  Receipt Date: 20251208
  Transmission Date: 20260117
  Serious: Yes (Other)
  Sender: MERCK SHARP & DOHME LLC
  Company Number: JP-009507513-2355361

PATIENT
  Age: 9 Decade
  Sex: Female

DRUGS (2)
  1. KEYTRUDA [Suspect]
     Active Substance: PEMBROLIZUMAB
     Indication: Metastatic uterine cancer
     Dosage: 200MG ONCE EVERY 3 WEEKS; FIRST CYCLE
     Route: 041
     Dates: start: 20251027, end: 202511
  2. LENVIMA [Suspect]
     Active Substance: LENVATINIB
     Indication: Metastatic uterine cancer
     Dosage: 14 MG, FREQ: UNK; STRENGTH: 10 MG
     Route: 048
     Dates: start: 20251027, end: 202511

REACTIONS (2)
  - Renal impairment [Recovering/Resolving]
  - Cardiac failure [Recovering/Resolving]

NARRATIVE: CASE EVENT DATE: 20251101
